FAERS Safety Report 9541865 (Version 1)
Quarter: 2013Q3

REPORT INFORMATION
  Report Type: Report from Study
  Country: MX (occurrence: MX)
  Receive Date: 20130923
  Receipt Date: 20130923
  Transmission Date: 20140515
  Serious: Yes (Death, Hospitalization)
  Sender: FDA-Public Use
  Company Number: PHHY2013MX105197

PATIENT
  Age: 65 Year
  Sex: Female

DRUGS (1)
  1. EXFORGE [Suspect]
     Dosage: 1 DF, (160 VALS AND 10 AMLO)
     Route: 048

REACTIONS (3)
  - Dyspnoea [Fatal]
  - Respiratory failure [Fatal]
  - Agonal death struggle [Fatal]
